FAERS Safety Report 4885363-5 (Version None)
Quarter: 2005Q4

REPORT INFORMATION
  Report Type: 
  Country: None (occurrence: None)
  Receive Date: 20051222
  Receipt Date: 20050223
  Transmission Date: 20060501
  Serious: Yes (Hospitalization)
  Sender: FDA-Public Use
  Company Number: 396720

PATIENT
  Age: 69 Year
  Sex: Female
  Weight: 54.4 kg

DRUGS (1)
  1. TICLID [Suspect]
     Indication: THROMBOSIS PROPHYLAXIS
     Dosage: ORAL
     Route: 048
     Dates: start: 20050213

REACTIONS (1)
  - THROMBOTIC THROMBOCYTOPENIC PURPURA [None]
